FAERS Safety Report 24147691 (Version 1)
Quarter: 2024Q3

REPORT INFORMATION
  Report Type: Spontaneous
  Country: FR (occurrence: FR)
  Receive Date: 20240729
  Receipt Date: 20240729
  Transmission Date: 20241017
  Serious: Yes (Hospitalization)
  Sender: ELI LILLY AND CO
  Company Number: None

PATIENT
  Age: 60 Year
  Sex: Male
  Weight: 81 kg

DRUGS (4)
  1. ALIMTA [Suspect]
     Active Substance: PEMETREXED DISODIUM
     Indication: Lung adenocarcinoma
     Dosage: 500 MG/M2, SINGLE (SUR 10 MINUTES)
     Route: 042
     Dates: start: 20240624, end: 20240624
  2. CARBOPLATIN [Suspect]
     Active Substance: CARBOPLATIN
     Indication: Lung adenocarcinoma
     Dosage: 5 MG, SINGLE (10 MG/ML SOLUTION INJECTABLE POUR PERFUSION/ EN 1H)
     Route: 042
     Dates: start: 20240624, end: 20240624
  3. KEYTRUDA [Suspect]
     Active Substance: PEMBROLIZUMAB
     Indication: Lung adenocarcinoma
     Dosage: 200 MG, SINGLE (EN 30 MIN)
     Route: 042
     Dates: start: 20240624, end: 20240624
  4. ONDANSETRON [Suspect]
     Active Substance: ONDANSETRON
     Indication: Lung adenocarcinoma
     Dosage: 200 MG, SINGLE (EN 30 MIN)
     Route: 042
     Dates: start: 20240624, end: 20240624

REACTIONS (2)
  - Purpura [Recovering/Resolving]
  - Rash maculo-papular [Recovering/Resolving]

NARRATIVE: CASE EVENT DATE: 20240702
